FAERS Safety Report 5329524-X (Version None)
Quarter: 2007Q1

REPORT INFORMATION
  Report Type: 
  Country: None (occurrence: None)
  Receive Date: 20070223
  Receipt Date: 20060403
  Transmission Date: 20070707
  Serious: Yes (Hospitalization)
  Sender: FDA-Public Use
  Company Number: WAES 0604USA00424

PATIENT
  Age: 28 Year
  Sex: Male

DRUGS (3)
  1. ZOCOR [Suspect]
     Indication: HYPERLIPIDAEMIA
     Dosage: 20 MG/HS/PO
     Route: 048
     Dates: start: 20050721, end: 20050809
  2. ALTACE [Concomitant]
  3. METHADONE HCL [Concomitant]

REACTIONS (4)
  - ASTHENIA [None]
  - LIVER FUNCTION TEST ABNORMAL [None]
  - RENAL FAILURE ACUTE [None]
  - RHABDOMYOLYSIS [None]
